FAERS Safety Report 15298262 (Version 3)
Quarter: 2025Q3

REPORT INFORMATION
  Report Type: Spontaneous
  Country: CL (occurrence: CL)
  Receive Date: 20180820
  Receipt Date: 20250801
  Transmission Date: 20251020
  Serious: Yes (Hospitalization, Other)
  Sender: NOVARTIS
  Company Number: PHHY2018CL077246

PATIENT
  Age: 54 Year
  Sex: Female
  Weight: 69 kg

DRUGS (8)
  1. VALSARTAN [Suspect]
     Active Substance: VALSARTAN
     Indication: Hypertension
     Dosage: 160 MG, QD
     Route: 065
  2. CARBAMAZEPINE [Suspect]
     Active Substance: CARBAMAZEPINE
     Indication: Neuralgia
     Dosage: 200 MG, BID
     Route: 065
  3. CARBAMAZEPINE [Suspect]
     Active Substance: CARBAMAZEPINE
     Dosage: 200 MG, TID
     Route: 065
     Dates: start: 201704
  4. AMLODIPINE [Suspect]
     Active Substance: AMLODIPINE BESYLATE
     Indication: Hypertension
     Dosage: 5 MG, QD
     Route: 065
  5. HYDROCHLOROTHIAZIDE [Suspect]
     Active Substance: HYDROCHLOROTHIAZIDE
     Indication: Hypertension
     Dosage: 12.5 MG, QD
     Route: 065
  6. AMOXICILLIN [Suspect]
     Active Substance: AMOXICILLIN
     Indication: Helicobacter gastritis
     Dosage: 1 G, BID
     Route: 065
  7. CLARITHROMYCIN [Interacting]
     Active Substance: CLARITHROMYCIN
     Indication: Helicobacter gastritis
     Dosage: 500 MG, BID
     Route: 065
     Dates: start: 20171019
  8. METFORMIN [Concomitant]
     Active Substance: METFORMIN HYDROCHLORIDE
     Indication: Insulin resistance
     Dosage: 850 MG, BID
     Route: 065
     Dates: start: 201102

REACTIONS (15)
  - Cholelithiasis [Unknown]
  - Jaundice [Unknown]
  - Pruritus [Unknown]
  - Deficiency of bile secretion [Unknown]
  - Hepatitis acute [Unknown]
  - Helicobacter gastritis [Unknown]
  - Abdominal pain upper [Unknown]
  - Decreased appetite [Unknown]
  - Weight decreased [Unknown]
  - Facial paralysis [Unknown]
  - Drug interaction [Unknown]
  - Drug hypersensitivity [Unknown]
  - Choluria [Unknown]
  - Hepatic steatosis [Unknown]
  - Scleral deposits [Unknown]

NARRATIVE: CASE EVENT DATE: 20170501
